FAERS Safety Report 17844932 (Version 1)
Quarter: 2020Q2

REPORT INFORMATION
  Report Type: Report from Study
  Country: BE (occurrence: BE)
  Receive Date: 20200601
  Receipt Date: 20200601
  Transmission Date: 20200714
  Serious: Yes (Other)
  Sender: FDA-Public Use
  Company Number: BE-SUN PHARMACEUTICAL INDUSTRIES LTD-2020R1-248703

PATIENT

DRUGS (2)
  1. CARBOPLATIN. [Suspect]
     Active Substance: CARBOPLATIN
     Indication: GASTRIC CANCER
     Dosage: UNK
     Route: 064
  2. PACLITAXEL. [Suspect]
     Active Substance: PACLITAXEL
     Indication: GASTRIC CANCER
     Dosage: UNK
     Route: 064

REACTIONS (7)
  - Foetal exposure during pregnancy [Unknown]
  - Hemianopia [Unknown]
  - Small for dates baby [Unknown]
  - Premature baby [Unknown]
  - Epilepsy [Unknown]
  - Bacillus infection [Unknown]
  - Cerebral palsy [Unknown]
